FAERS Safety Report 9467176 (Version 1)
Quarter: 2013Q3

REPORT INFORMATION
  Report Type: Spontaneous
  Country: DE (occurrence: DE)
  Receive Date: 20130821
  Receipt Date: 20130821
  Transmission Date: 20140515
  Serious: Yes (Hospitalization)
  Sender: FDA-Public Use
  Company Number: DE-PAR PHARMACEUTICAL, INC-2013SCPR006105

PATIENT
  Sex: 0

DRUGS (7)
  1. VENLAFAXINE HYDROCHLORIDE [Suspect]
     Indication: MAJOR DEPRESSION
     Dosage: 37.5 MG, / DAY
     Route: 065
  2. VENLAFAXINE HYDROCHLORIDE [Interacting]
     Dosage: 75 MG, / DAY
     Route: 065
  3. VENLAFAXINE HYDROCHLORIDE [Interacting]
     Dosage: 112.5 MG, / DAY
     Route: 065
  4. VENLAFAXINE HYDROCHLORIDE [Interacting]
     Dosage: 150 MG, / DAY
     Route: 065
  5. VENLAFAXINE HYDROCHLORIDE [Interacting]
     Dosage: 112.5 MG, / DAY
     Route: 065
  6. COTRIMOXAZOLE [Interacting]
     Indication: CYSTITIS
     Dosage: 960 MG, BID
     Route: 065
  7. LITHIUM CARBONATE [Suspect]
     Indication: MAJOR DEPRESSION
     Dosage: 675 MG, / DAY
     Route: 065

REACTIONS (4)
  - Drug interaction [Unknown]
  - Resting tremor [Recovered/Resolved]
  - Tension [Recovered/Resolved]
  - Tremor [Recovered/Resolved]
